FAERS Safety Report 17454731 (Version 1)
Quarter: 2020Q1

REPORT INFORMATION
  Report Type: Spontaneous
  Country: US (occurrence: US)
  Receive Date: 20200224
  Receipt Date: 20200224
  Transmission Date: 20200409
  Serious: Yes (Hospitalization)
  Sender: FDA-Public Use
  Company Number: None

PATIENT
  Sex: Female

DRUGS (1)
  1. ZEJULA [Suspect]
     Active Substance: NIRAPARIB
     Indication: OVARIAN CANCER
     Route: 048
     Dates: start: 20191201

REACTIONS (19)
  - Complication associated with device [None]
  - Platelet count decreased [None]
  - Asthenia [None]
  - Transfusion [None]
  - Hyperkalaemia [None]
  - Grief reaction [None]
  - Muscle spasms [None]
  - Nausea [None]
  - Renal impairment [None]
  - Contusion [None]
  - Hypophagia [None]
  - Blood pressure decreased [None]
  - Decreased appetite [None]
  - Haemoglobin decreased [None]
  - Feeling abnormal [None]
  - Feeling cold [None]
  - Blood glucose [None]
  - Heart rate increased [None]
  - Insomnia [None]
